FAERS Safety Report 22605834 (Version 2)
Quarter: 2023Q2

REPORT INFORMATION
  Report Type: Spontaneous
  Country: US (occurrence: US)
  Receive Date: 20230615
  Receipt Date: 20230621
  Transmission Date: 20230721
  Serious: Yes (Other)
  Sender: FDA-Public Use
  Company Number: US-ORGANON-O2306USA001788

PATIENT
  Sex: Female

DRUGS (1)
  1. FOSAMAX [Suspect]
     Active Substance: ALENDRONATE SODIUM
     Indication: Bone loss
     Dosage: UNK
     Route: 048
     Dates: start: 2007, end: 2013

REACTIONS (2)
  - Osteonecrosis of jaw [Not Recovered/Not Resolved]
  - Infection [Not Recovered/Not Resolved]
